FAERS Safety Report 11274567 (Version 2)
Quarter: 2015Q3

REPORT INFORMATION
  Report Type: Spontaneous
  Country: US (occurrence: US)
  Receive Date: 20150715
  Receipt Date: 20150807
  Transmission Date: 20151125
  Serious: Yes (Other)
  Sender: FDA-Public Use
  Company Number: US-GLAXOSMITHKLINE-US2015GSK098866

PATIENT
  Age: 47 Year
  Sex: Female

DRUGS (2)
  1. VALTREX [Suspect]
     Active Substance: VALACYCLOVIR HYDROCHLORIDE
     Indication: HERPES VIRUS INFECTION
     Dosage: 500 MG, U
     Dates: start: 2006
  2. VALTREX [Suspect]
     Active Substance: VALACYCLOVIR HYDROCHLORIDE
     Dosage: 500 MG, U

REACTIONS (10)
  - Biopsy [Unknown]
  - Vaginal odour [Unknown]
  - Drug ineffective [Unknown]
  - Hysteroscopy [Unknown]
  - Bacterial infection [Recovering/Resolving]
  - Uterine operation [Unknown]
  - Cervix carcinoma [Unknown]
  - Expired product administered [Unknown]
  - Haemorrhage [Unknown]
  - Malaise [Unknown]

NARRATIVE: CASE EVENT DATE: 201501
